FAERS Safety Report 11809478 (Version 6)
Quarter: 2016Q1

REPORT INFORMATION
  Report Type: Report from Study
  Country: CA (occurrence: CA)
  Receive Date: 20151208
  Receipt Date: 20160311
  Transmission Date: 20160525
  Serious: Yes (Other)
  Sender: FDA-Public Use
  Company Number: CA-ROCHE-1655263

PATIENT
  Age: 52 Year
  Sex: Male

DRUGS (6)
  1. AVASTIN [Suspect]
     Active Substance: BEVACIZUMAB
     Indication: BRAIN NEOPLASM MALIGNANT
     Route: 042
     Dates: start: 20150617
  2. DILANTIN [Concomitant]
     Active Substance: PHENYTOIN
  3. TEMODAL [Concomitant]
     Active Substance: TEMOZOLOMIDE
     Route: 065
     Dates: start: 20160121
  4. LAMOTRIGINE. [Concomitant]
     Active Substance: LAMOTRIGINE
  5. TEMODAL [Concomitant]
     Active Substance: TEMOZOLOMIDE
     Route: 065
  6. ATIVAN [Concomitant]
     Active Substance: LORAZEPAM

REACTIONS (8)
  - Generalised tonic-clonic seizure [Unknown]
  - Neoplasm [Unknown]
  - Hemiparesis [Not Recovered/Not Resolved]
  - Heart rate decreased [Unknown]
  - Fatigue [Unknown]
  - Balance disorder [Unknown]
  - Fall [Unknown]
  - Incision site oedema [Unknown]

NARRATIVE: CASE EVENT DATE: 201511
